FAERS Safety Report 7439092-4 (Version None)
Quarter: 2011Q2

REPORT INFORMATION
  Report Type: 
  Country: None (occurrence: None)
  Receive Date: 20110427
  Receipt Date: 20110420
  Transmission Date: 20111010
  Serious: Yes (Hospitalization)
  Sender: FDA-Public Use
  Company Number: GB-CEPHALON-2010005511

PATIENT
  Sex: Male
  Weight: 93 kg

DRUGS (9)
  1. TREANDA [Suspect]
     Route: 041
     Dates: start: 20100510
  2. RITUXIMAB [Suspect]
     Route: 042
     Dates: start: 20100930
  3. SERETIDE [Concomitant]
  4. ITRACONAZOLE [Concomitant]
  5. ACICLOVIR [Concomitant]
  6. DAPSONE [Concomitant]
  7. TREANDA [Suspect]
     Route: 042
     Dates: start: 20100930
  8. RITUXIMAB [Suspect]
     Route: 042
     Dates: start: 20100510
  9. PREDNISOLONE [Concomitant]
     Dates: end: 20101013

REACTIONS (2)
  - CHRONIC OBSTRUCTIVE PULMONARY DISEASE [None]
  - LUNG INFECTION [None]
